FAERS Safety Report 12725194 (Version 1)
Quarter: 2016Q3

REPORT INFORMATION
  Report Type: Spontaneous
  Country: US (occurrence: US)
  Receive Date: 20160905
  Receipt Date: 20160905
  Transmission Date: 20161109
  Serious: Yes (Disabling)
  Sender: FDA-Public Use
  Company Number: None

PATIENT
  Age: 28 Year
  Sex: Female
  Weight: 46.8 kg

DRUGS (1)
  1. LEVOFLOXACIN 500 MG TABLET [Suspect]
     Active Substance: LEVOFLOXACIN
     Indication: PNEUMONITIS
     Route: 048
     Dates: start: 20160903, end: 20160903

REACTIONS (3)
  - Arthralgia [None]
  - Musculoskeletal stiffness [None]
  - Paraesthesia [None]

NARRATIVE: CASE EVENT DATE: 20160903
